FAERS Safety Report 18597112 (Version 5)
Quarter: 2021Q3

REPORT INFORMATION
  Report Type: Report from Study
  Country: US (occurrence: US)
  Receive Date: 20201209
  Receipt Date: 20210727
  Transmission Date: 20211014
  Serious: Yes (Hospitalization, Other)
  Sender: FDA-Public Use
  Company Number: US-B.I. PHARMACEUTICALS,INC./RIDGEFIELD-2020-BI-044010

PATIENT
  Age: 89 Year
  Sex: Male

DRUGS (1)
  1. OFEV [Suspect]
     Active Substance: NINTEDANIB
     Indication: IDIOPATHIC PULMONARY FIBROSIS
     Dosage: 150 MG TWICE ORALLY
     Route: 048
     Dates: start: 20180530

REACTIONS (20)
  - Sepsis [Unknown]
  - Incontinence [Not Recovered/Not Resolved]
  - Dehydration [Unknown]
  - Prostatic haemorrhage [Unknown]
  - Umbilical hernia [Unknown]
  - Clostridium difficile infection [Unknown]
  - Asthenia [Not Recovered/Not Resolved]
  - Transcatheter aortic valve implantation [Unknown]
  - Cataract [Unknown]
  - Diarrhoea [Unknown]
  - Fall [Unknown]
  - Infection [Unknown]
  - Urinary bladder haemorrhage [Unknown]
  - Urinary tract infection [Unknown]
  - Cholecystitis [Unknown]
  - Cholelithiasis [Unknown]
  - Asthenia [Unknown]
  - Urosepsis [Unknown]
  - Gallbladder operation [Recovering/Resolving]
  - Multiple injuries [Unknown]

NARRATIVE: CASE EVENT DATE: 20200818
